FAERS Safety Report 23609211 (Version 2)
Quarter: 2024Q2

REPORT INFORMATION
  Report Type: Spontaneous
  Country: JP (occurrence: None)
  Receive Date: 20240308
  Receipt Date: 20240419
  Transmission Date: 20240715
  Serious: Yes (Disabling, Other)
  Sender: FDA-Public Use
  Company Number: 2024A054455

PATIENT
  Age: 81 Year
  Sex: Female
  Weight: 52 kg

DRUGS (16)
  1. LYNPARZA [Suspect]
     Active Substance: OLAPARIB
     Indication: Breast cancer recurrent
     Route: 048
     Dates: start: 20211126
  2. LYNPARZA [Suspect]
     Active Substance: OLAPARIB
     Indication: Breast cancer recurrent
     Dosage: DOSE UNKNOWN
     Route: 048
     Dates: end: 20230620
  3. MEXAZOLAM [Concomitant]
     Active Substance: MEXAZOLAM
     Dosage: DOSE UNKNOWN
     Route: 048
     Dates: start: 20220401
  4. LUNESTA [Concomitant]
     Active Substance: ESZOPICLONE
     Dosage: DOSE UNKNOWN
     Route: 048
     Dates: start: 20220401
  5. BELSOMRA [Concomitant]
     Active Substance: SUVOREXANT
     Dosage: DOSE UNKNOWN
     Dates: start: 20220401
  6. TRAZODONE [Concomitant]
     Active Substance: TRAZODONE HYDROCHLORIDE
     Dosage: DOSE UNKNOWN
     Dates: start: 20220401
  7. AMLODIPINE [Concomitant]
     Active Substance: AMLODIPINE BESYLATE
     Dosage: DOSE UNKNOWN
     Route: 048
     Dates: start: 20111111
  8. PITAVASTATIN CALCIUM [Concomitant]
     Active Substance: PITAVASTATIN CALCIUM
     Dosage: DOSE UNKNOWN
     Route: 048
     Dates: start: 20140411
  9. ELOBIXIBAT [Concomitant]
     Active Substance: ELOBIXIBAT
     Dosage: DOSE UNKNOWN
     Route: 048
     Dates: start: 20230329
  10. MIYA-BM [Concomitant]
     Active Substance: CLOSTRIDIUM BUTYRICUM SPORES STRAIN M-55
     Dosage: DOSE UNKNOWN
     Route: 048
     Dates: start: 20230713, end: 20230812
  11. HERBALS [Concomitant]
     Active Substance: HERBALS
     Dosage: DOSE UNKNOWN
     Route: 048
     Dates: start: 20230329
  12. MAGNESIUM OXIDE [Concomitant]
     Active Substance: MAGNESIUM OXIDE
     Dosage: DOSE UNKNOWN
     Route: 048
     Dates: start: 20140307
  13. LANSOPRAZOLE [Concomitant]
     Active Substance: LANSOPRAZOLE
     Route: 048
     Dates: start: 20220107, end: 20220204
  14. ALLOID G [Concomitant]
     Active Substance: SODIUM ALGINATE
     Dosage: DOSE UNKNOWN
     Route: 048
     Dates: start: 20220519, end: 20220808
  15. SODIUM PICOSULFATE [Concomitant]
     Active Substance: SODIUM PICOSULFATE
     Dosage: DOSE UNKNOWN
     Route: 048
     Dates: start: 20220519
  16. DEXAMETHASONE [Concomitant]
     Active Substance: DEXAMETHASONE
     Dosage: DOSE UNKNOWN, APPLICATION
     Route: 049
     Dates: start: 20220916

REACTIONS (4)
  - Abdominal discomfort [Unknown]
  - Myelosuppression [Not Recovered/Not Resolved]
  - White blood cell count decreased [Recovered/Resolved]
  - Weight decreased [Unknown]

NARRATIVE: CASE EVENT DATE: 20211210
